FAERS Safety Report 12240933 (Version 1)
Quarter: 2016Q2

REPORT INFORMATION
  Report Type: Report from Study
  Country: FR (occurrence: FR)
  Receive Date: 20160406
  Receipt Date: 20160406
  Transmission Date: 20160815
  Serious: Yes (Life-Threatening)
  Sender: FDA-Public Use
  Company Number: FR-009507513-1604FRA000080

PATIENT

DRUGS (2)
  1. TEMODAL [Suspect]
     Active Substance: TEMOZOLOMIDE
     Indication: METASTATIC OCULAR MELANOMA
     Dosage: 150 MG/M2, DAYS 1-7 AND 15-21, IN 28-DAY CYCLE X 6 CYCLES
     Route: 048
  2. AVASTIN [Suspect]
     Active Substance: BEVACIZUMAB
     Indication: METASTATIC OCULAR MELANOMA
     Dosage: 10 MG/KG, DAYS 8 AND 22, IN 28-DAY CYCLE X 6 CYCLES, MAINTENANCE IN NON PROGRESSIVE PATIENTS
     Route: 042

REACTIONS (2)
  - Febrile neutropenia [Unknown]
  - Pneumonitis [Unknown]
